FAERS Safety Report 8995397 (Version 1)
Quarter: 2013Q1

REPORT INFORMATION
  Report Type: Spontaneous
  Country: US (occurrence: US)
  Receive Date: 20130103
  Receipt Date: 20130103
  Transmission Date: 20140127
  Serious: No
  Sender: FDA-Public Use
  Company Number: US-ABBOTT-12P-163-0919347-00

PATIENT
  Sex: Female
  Weight: 80.36 kg

DRUGS (3)
  1. SYNTHROID [Suspect]
     Indication: HYPOTHYROIDISM
     Route: 048
     Dates: start: 2009, end: 201101
  2. SYNTHROID [Suspect]
     Route: 048
     Dates: start: 201101
  3. CYTOMEL [Concomitant]
     Indication: THYROID DISORDER

REACTIONS (8)
  - Feeling abnormal [Not Recovered/Not Resolved]
  - Weight increased [Not Recovered/Not Resolved]
  - Drug ineffective [Not Recovered/Not Resolved]
  - Fatigue [Not Recovered/Not Resolved]
  - Somnolence [Not Recovered/Not Resolved]
  - Asthenia [Not Recovered/Not Resolved]
  - Hypothyroidism [Recovered/Resolved]
  - Fatigue [Not Recovered/Not Resolved]
